FAERS Safety Report 20081806 (Version 1)
Quarter: 2021Q4

REPORT INFORMATION
  Report Type: Spontaneous
  Country: US (occurrence: None)
  Receive Date: 20211117
  Receipt Date: 20211117
  Transmission Date: 20220303
  Serious: No
  Sender: FDA-Public Use
  Company Number: None

PATIENT
  Sex: Male

DRUGS (2)
  1. NOVOSEVEN RT [Suspect]
     Active Substance: COAGULATION FACTOR VIIA RECOMBINANT HUMAN
     Indication: Factor IX deficiency
     Dosage: OTHER FREQUENCY : AS DIRECTED FOR BL;?OTHER ROUTE : PORT;?
     Route: 050
  2. NOVOSEVEN RT [Suspect]
     Active Substance: COAGULATION FACTOR VIIA RECOMBINANT HUMAN
     Indication: Factor IX deficiency
     Dosage: OTHER FREQUENCY : AS DIRECTED FOR BL;?OTHER ROUTE : PORT;?
     Route: 050
     Dates: start: 20201002

REACTIONS (2)
  - Haemorrhage [None]
  - General physical health deterioration [None]
